FAERS Safety Report 7016389-3 (Version None)
Quarter: 2010Q3

REPORT INFORMATION
  Report Type: 
  Country: None (occurrence: None)
  Receive Date: 20100923
  Receipt Date: 20100908
  Transmission Date: 20110219
  Serious: Yes (Death)
  Sender: FDA-Public Use
  Company Number: AUR-APL-2010-02250

PATIENT
  Age: 41 Year

DRUGS (4)
  1. SERTRALINE HYDROCHLORIDE [Suspect]
  2. CLOZAPINE [Suspect]
     Dosage: 750MG, DAILY
     Dates: start: 20040101, end: 20080901
  3. AMITRIPTYLINE [Suspect]
  4. LACTULOSE [Concomitant]

REACTIONS (19)
  - ABDOMINAL DISTENSION [None]
  - ASTHENIA [None]
  - BRAIN OEDEMA [None]
  - CELL DEATH [None]
  - CEREBRAL HAEMORRHAGE [None]
  - CONSTIPATION [None]
  - DIARRHOEA [None]
  - DIZZINESS [None]
  - EYES SUNKEN [None]
  - FEELING ABNORMAL [None]
  - HAEMATEMESIS [None]
  - HAEMATOCHEZIA [None]
  - LEUKOCYTOSIS [None]
  - MALAISE [None]
  - MONOCYTOSIS [None]
  - PULMONARY ALVEOLAR HAEMORRHAGE [None]
  - RESPIRATORY ARREST [None]
  - SOMNOLENCE [None]
  - SPLEEN CONGESTION [None]
